FAERS Safety Report 8821065 (Version 3)
Quarter: 2012Q4

REPORT INFORMATION
  Report Type: 
  Country: US (occurrence: US)
  Receive Date: 20121002
  Receipt Date: 20121214
  Transmission Date: 20130627
  Serious: Yes (Hospitalization, Other)
  Sender: FDA-Public Use
  Company Number: US-009507513-1103USA00987

PATIENT

DRUGS (7)
  1. FOSAMAX [Suspect]
     Indication: OSTEOPOROSIS
     Dosage: 70 mg, qw
     Route: 048
     Dates: end: 20100119
  2. FOSAMAX [Suspect]
     Indication: OSTEOPENIA
     Dosage: 10 mg, qd
     Route: 048
     Dates: start: 20000724
  3. ALENDRONATE SODIUM [Suspect]
     Dosage: 70 mg, UNK
     Route: 048
     Dates: start: 20081201, end: 20090916
  4. VITAMINS (UNSPECIFIED) [Concomitant]
  5. CALCIUM (UNSPECIFIED) [Concomitant]
     Dosage: 1500 mg, UNK
  6. ASCORBIC ACID [Concomitant]
  7. OMEGA-3 [Concomitant]

REACTIONS (32)
  - Femur fracture [Unknown]
  - Intramedullary rod insertion [Unknown]
  - Surgery [Unknown]
  - Femur fracture [Unknown]
  - Intramedullary rod insertion [Unknown]
  - Medical device removal [Unknown]
  - Bone marrow transplant [Unknown]
  - Bunion operation [Unknown]
  - Fracture nonunion [Not Recovered/Not Resolved]
  - Impaired healing [Not Recovered/Not Resolved]
  - Depression [Unknown]
  - Anxiety [Unknown]
  - Pain [Not Recovered/Not Resolved]
  - Lower limb fracture [Unknown]
  - Lower limb fracture [Unknown]
  - Fracture [Unknown]
  - Fracture [Unknown]
  - Osteoarthritis [Unknown]
  - Osteochondrosis [Unknown]
  - Red blood cell sedimentation rate increased [Unknown]
  - Antinuclear antibody increased [Unknown]
  - Hypercholesterolaemia [Unknown]
  - Blood triglycerides increased [Unknown]
  - Inflammatory marker increased [Unknown]
  - Carpal tunnel syndrome [Unknown]
  - Blister [Unknown]
  - Vitamin D deficiency [Unknown]
  - Animal bite [Unknown]
  - Limb asymmetry [Unknown]
  - Spondylitis [Unknown]
  - Spinal disorder [Unknown]
  - Gastrooesophageal reflux disease [Unknown]
